FAERS Safety Report 8996151 (Version 2)
Quarter: 2013Q1

REPORT INFORMATION
  Report Type: Spontaneous
  Country: JP (occurrence: JP)
  Receive Date: 20130103
  Receipt Date: 20130327
  Transmission Date: 20140127
  Serious: Yes (Other)
  Sender: FDA-Public Use
  Company Number: JP-TEVA-2011004251

PATIENT
  Age: 54 Year
  Sex: Female

DRUGS (7)
  1. BENDAMUSTINE HCL [Suspect]
     Indication: B-CELL LYMPHOMA
     Dosage: 90 MG/M2 DAILY;
     Route: 042
     Dates: start: 20110414, end: 20110415
  2. BENDAMUSTINE HCL [Suspect]
     Dosage: 90 MG/M2 DAILY;
     Route: 042
     Dates: start: 20110513, end: 20110514
  3. BENDAMUSTINE HCL [Suspect]
     Dosage: 90 MG/M2 DAILY;
     Route: 042
     Dates: start: 20110613, end: 20110614
  4. BENDAMUSTINE HCL [Suspect]
     Dosage: 90 MG/M2 DAILY;
     Route: 042
     Dates: start: 20110803, end: 20110804
  5. BENDAMUSTINE HCL [Suspect]
     Dosage: 90 MG/M2 DAILY;
     Route: 042
     Dates: start: 20110831, end: 20110901
  6. BENDAMUSTINE HCL [Suspect]
     Dosage: 90 MG/M2 DAILY;
     Route: 042
     Dates: start: 20111002, end: 20111003
  7. RITUXIMAB [Concomitant]
     Dates: start: 20110403

REACTIONS (3)
  - Hepatic function abnormal [Recovered/Resolved]
  - Neutropenia [Recovered/Resolved]
  - Eosinophil count increased [Recovered/Resolved]
